FAERS Safety Report 5751021-8 (Version None)
Quarter: 2008Q2

REPORT INFORMATION
  Report Type: 
  Country: None (occurrence: None)
  Receive Date: 20080528
  Receipt Date: 20080519
  Transmission Date: 20081010
  Serious: Yes (Life-Threatening, Hospitalization, Disabling, Other)
  Sender: FDA-Public Use
  Company Number: FR-ABBOTT-07P-056-0427298-00

PATIENT
  Sex: Female

DRUGS (24)
  1. HUMIRA [Suspect]
     Indication: RHEUMATOID ARTHRITIS
     Route: 058
     Dates: start: 20061101, end: 20070524
  2. HUMIRA [Suspect]
     Route: 058
     Dates: start: 20060901, end: 20061101
  3. ETANERCEPT [Suspect]
     Indication: RHEUMATOID ARTHRITIS
     Route: 058
     Dates: start: 20031201, end: 20040601
  4. LEFLUNOMIDE [Suspect]
     Indication: RHEUMATOID ARTHRITIS
     Route: 048
     Dates: start: 20040901
  5. LEFLUNOMIDE [Suspect]
     Route: 048
     Dates: end: 20050601
  6. KINERET [Suspect]
     Indication: RHEUMATOID ARTHRITIS
     Route: 058
     Dates: start: 20051001, end: 20051201
  7. PREDNISONE TAB [Suspect]
     Indication: RHEUMATOID ARTHRITIS
     Route: 048
     Dates: start: 20051101
  8. METHOTREXATE [Suspect]
     Indication: RHEUMATOID ARTHRITIS
     Route: 048
     Dates: start: 19971101, end: 20040101
  9. METHOTREXATE [Suspect]
     Route: 048
     Dates: start: 20040101, end: 20040301
  10. METHOTREXATE [Suspect]
     Route: 048
     Dates: start: 20040301, end: 20040601
  11. METHOTREXATE [Suspect]
     Route: 048
     Dates: start: 20040601, end: 20040901
  12. METHOTREXATE [Suspect]
     Route: 048
     Dates: end: 20050301
  13. ACEBUTOLOL [Concomitant]
     Indication: ESSENTIAL HYPERTENSION
     Dosage: 1/2 TABLET IN THE MORNING, 3/4 TABLET IN THE EVENING
     Route: 048
     Dates: start: 20060101
  14. CLONAZEPAM [Concomitant]
     Indication: DRUG USE FOR UNKNOWN INDICATION
     Route: 048
     Dates: start: 20060101
  15. RAMIPRIL [Concomitant]
     Indication: ESSENTIAL HYPERTENSION
     Route: 048
  16. CALCIUM [Concomitant]
     Indication: OSTEOPOROSIS
     Route: 048
  17. PANTOPRAZOLE SODIUM [Concomitant]
     Indication: DRUG USE FOR UNKNOWN INDICATION
     Route: 048
     Dates: start: 20060101
  18. ACETYLLEUCINE [Concomitant]
     Indication: DRUG USE FOR UNKNOWN INDICATION
     Route: 048
  19. ACETAMINOPHEN [Concomitant]
     Indication: MUSCULOSKELETAL PAIN
     Route: 050
     Dates: end: 20070607
  20. ACETAMINOPHEN [Concomitant]
     Indication: PAIN
     Route: 048
  21. INSULIN GLARGINE [Concomitant]
     Indication: TYPE 1 DIABETES MELLITUS
     Route: 058
  22. ASPARTE INSULIN [Concomitant]
     Indication: TYPE 1 DIABETES MELLITUS
     Dosage: 3 INJECTIONS PER DAY
     Route: 058
  23. SULFASALAZINE [Concomitant]
     Indication: DRUG USE FOR UNKNOWN INDICATION
     Dates: start: 19971101, end: 20071201
  24. FUROSEMIDE [Concomitant]
     Indication: DRUG USE FOR UNKNOWN INDICATION
     Route: 048
     Dates: start: 20000101

REACTIONS (9)
  - ANORECTAL DISORDER [None]
  - CONSTIPATION [None]
  - DIARRHOEA [None]
  - GASTROINTESTINAL MOTILITY DISORDER [None]
  - INFLAMMATION [None]
  - METASTASES TO LIVER [None]
  - MICROCYTIC ANAEMIA [None]
  - RECTAL HAEMORRHAGE [None]
  - RECTOSIGMOID CANCER [None]
